FAERS Safety Report 7339491-5 (Version None)
Quarter: 2011Q1

REPORT INFORMATION
  Report Type: 
  Country: None (occurrence: None)
  Receive Date: 20110308
  Receipt Date: 20110124
  Transmission Date: 20110831
  Serious: No
  Sender: FDA-Public Use
  Company Number: US-AMGEN-USASP2011004328

PATIENT
  Age: 73 Year
  Sex: Female

DRUGS (4)
  1. MAXZIDE [Concomitant]
     Dosage: UNK
  2. PROLIA [Suspect]
     Indication: OSTEOPOROSIS POSTMENOPAUSAL
     Dosage: 60 MG, Q6MO
     Dates: start: 20100831
  3. CALCITROL                          /00508501/ [Concomitant]
     Dosage: UNK
  4. SYNTHROID [Concomitant]
     Dosage: 25 MG, UNK

REACTIONS (6)
  - MICTURITION DISORDER [None]
  - SKIN DISCOLOURATION [None]
  - BLADDER DISORDER [None]
  - TINEA INFECTION [None]
  - RASH [None]
  - LOW DENSITY LIPOPROTEIN INCREASED [None]
